FAERS Safety Report 15789201 (Version 2)
Quarter: 2019Q2

REPORT INFORMATION
  Report Type: Spontaneous
  Country: US (occurrence: US)
  Receive Date: 20190104
  Receipt Date: 20190404
  Transmission Date: 20190711
  Serious: Yes (Other)
  Sender: FDA-Public Use
  Company Number: US-PFIZER INC-2019004439

PATIENT
  Sex: Male

DRUGS (2)
  1. DILANTIN [Suspect]
     Active Substance: PHENYTOIN
     Indication: GENERALISED TONIC-CLONIC SEIZURE
     Dosage: 600 MG, 2X/DAY (100 MG 6 DAILY 2 TIMES, 3 IN A.M - 3 IN P.M)
     Dates: start: 1986
  2. DILANTIN [Suspect]
     Active Substance: PHENYTOIN
     Indication: ABDOMINAL DISTENSION

REACTIONS (5)
  - Diabetes mellitus [Unknown]
  - Glaucoma [Unknown]
  - Drug ineffective [Unknown]
  - Depression [Unknown]
  - Learning disability [Unknown]

NARRATIVE: CASE EVENT DATE: 2018
